FAERS Safety Report 13912952 (Version 1)
Quarter: 2017Q3

REPORT INFORMATION
  Report Type: Spontaneous
  Country: FI (occurrence: FI)
  Receive Date: 20170828
  Receipt Date: 20170828
  Transmission Date: 20171127
  Serious: Yes (Hospitalization)
  Sender: FDA-Public Use
  Company Number: FI-ELI_LILLY_AND_COMPANY-FI201708006994

PATIENT
  Age: 70 Year
  Sex: Female

DRUGS (2)
  1. TRULICITY [Suspect]
     Active Substance: DULAGLUTIDE
     Indication: PRODUCT USED FOR UNKNOWN INDICATION
     Dosage: 0.75 MG, UNKNOWN
     Route: 065
  2. TRULICITY [Suspect]
     Active Substance: DULAGLUTIDE
     Dosage: 1.5 UNK, UNKNOWN
     Route: 065
     Dates: start: 201705

REACTIONS (5)
  - Pain [Unknown]
  - Feeling abnormal [Unknown]
  - Osteoarthritis [Unknown]
  - Hepatic function abnormal [Unknown]
  - Hepatitis [Unknown]

NARRATIVE: CASE EVENT DATE: 20170812
